FAERS Safety Report 24920330 (Version 1)
Quarter: 2025Q1

REPORT INFORMATION
  Report Type: Report from Study
  Country: US (occurrence: US)
  Receive Date: 20250204
  Receipt Date: 20250204
  Transmission Date: 20250409
  Serious: No
  Sender: EXELIXIS
  Company Number: US-EXELIXIS-CABO-24073669

PATIENT
  Age: 62 Year
  Sex: Female
  Weight: 97.506 kg

DRUGS (1)
  1. CABOMETYX [Suspect]
     Active Substance: CABOZANTINIB S-MALATE
     Indication: Renal cancer
     Dosage: 60 MG, QD
     Route: 048
     Dates: start: 20231106

REACTIONS (5)
  - Abdominal discomfort [Unknown]
  - Weight decreased [Unknown]
  - Diarrhoea [Unknown]
  - Decreased appetite [Unknown]
  - Stomatitis [Unknown]

NARRATIVE: CASE EVENT DATE: 20231101
